FAERS Safety Report 8561927-2 (Version None)
Quarter: 2012Q3

REPORT INFORMATION
  Report Type: 
  Country: None (occurrence: None)
  Receive Date: 20120802
  Receipt Date: 20120725
  Transmission Date: 20120928
  Serious: Yes (Hospitalization, Other)
  Sender: FDA-Public Use
  Company Number: HR-ABBOTT-12P-216-0960671-00

PATIENT
  Age: 55 Year
  Sex: Female

DRUGS (4)
  1. GLOKOZA (GLUCOSE) [Concomitant]
     Indication: PRODUCT USED FOR UNKNOWN INDICATION
  2. DIAZEPAM [Concomitant]
     Indication: ANXIETY
     Route: 048
  3. SSRI [Concomitant]
     Indication: DEPRESSION
  4. BETASERC [Suspect]
     Indication: VESTIBULAR NEURONITIS
     Route: 048

REACTIONS (23)
  - PANIC DISORDER [None]
  - TENSION [None]
  - CERVICOBRACHIAL SYNDROME [None]
  - BALANCE DISORDER [None]
  - DEPRESSION [None]
  - VERTIGO [None]
  - VESTIBULAR NEURONITIS [None]
  - DIZZINESS [None]
  - GAIT DISTURBANCE [None]
  - SPINAL OSTEOARTHRITIS [None]
  - VOMITING [None]
  - FEELING ABNORMAL [None]
  - FEAR [None]
  - FEAR OF FALLING [None]
  - WALKING DISABILITY [None]
  - TREATMENT NONCOMPLIANCE [None]
  - HEADACHE [None]
  - NAUSEA [None]
  - AUTONOMIC NERVOUS SYSTEM IMBALANCE [None]
  - NERVOUS SYSTEM DISORDER [None]
  - DYSSTASIA [None]
  - NYSTAGMUS [None]
  - ACTIVITIES OF DAILY LIVING IMPAIRED [None]
